FAERS Safety Report 8994373 (Version 1)
Quarter: 2012Q4

REPORT INFORMATION
  Report Type: Spontaneous
  Country: US (occurrence: None)
  Receive Date: 20121227
  Receipt Date: 20121227
  Transmission Date: 20130627
  Serious: Yes (Other)
  Sender: FDA-Public Use
  Company Number: None

PATIENT
  Sex: Male
  Weight: 86.9 kg

DRUGS (14)
  1. ISOVUE-370 [Suspect]
     Indication: IMAGING PROCEDURE
     Dosage: 70 ml once IV
     Route: 042
     Dates: start: 20121120, end: 20121120
  2. MIDAZOLAM [Concomitant]
  3. FENTANYL [Concomitant]
  4. LIDOCAINE [Concomitant]
  5. MIDAZOLAM [Concomitant]
  6. FENTANYL [Concomitant]
  7. VERAPAMIL [Concomitant]
  8. HEPARIN [Concomitant]
  9. MIDAZOLAM [Concomitant]
  10. METHYLPREDNISOLONE [Concomitant]
  11. DIPHENHYDRAMINE [Concomitant]
  12. ISOVUE [Concomitant]
  13. EPINEPHRINE [Concomitant]
  14. RANITIDINE [Concomitant]

REACTIONS (2)
  - Hypotension [None]
  - Urticaria [None]
